FAERS Safety Report 9426038 (Version 1)
Quarter: 2013Q3

REPORT INFORMATION
  Report Type: Spontaneous
  Country: HK (occurrence: HK)
  Receive Date: 20130730
  Receipt Date: 20130730
  Transmission Date: 20140515
  Serious: Yes (Hospitalization, Other)
  Sender: FDA-Public Use
  Company Number: HK-AMGEN-HKGSP2013052559

PATIENT
  Age: 43 Year
  Sex: Female

DRUGS (1)
  1. ENBREL [Suspect]
     Indication: ANKYLOSING SPONDYLITIS
     Dosage: 50 MG, WEEKLY
     Route: 065

REACTIONS (6)
  - Dyspnoea [Recovering/Resolving]
  - Decreased immune responsiveness [Recovering/Resolving]
  - Drug effect incomplete [Recovering/Resolving]
  - Tuberculosis [Recovering/Resolving]
  - Fungal infection [Recovering/Resolving]
  - Anaemia [Recovering/Resolving]
